FAERS Safety Report 18446119 (Version 1)
Quarter: 2020Q4

REPORT INFORMATION
  Report Type: Report from Study
  Country: US (occurrence: US)
  Receive Date: 20201030
  Receipt Date: 20201030
  Transmission Date: 20210114
  Serious: No
  Sender: FDA-Public Use
  Company Number: US-AMGEN-USA-20200208599

PATIENT
  Age: 61 Year
  Sex: Female

DRUGS (2)
  1. OTEZLA [Suspect]
     Active Substance: APREMILAST
     Dosage: 30 MILLIGRAM, QD
     Route: 048
     Dates: end: 202008
  2. OTEZLA [Suspect]
     Active Substance: APREMILAST
     Indication: PSORIASIS
     Dosage: 30 MILLIGRAM, BID
     Route: 048
     Dates: start: 20160324

REACTIONS (7)
  - Fatigue [Recovered/Resolved]
  - Headache [Unknown]
  - Depression [Unknown]
  - Diarrhoea [Unknown]
  - Apathy [Recovered/Resolved]
  - Somnolence [Recovered/Resolved]
  - Abdominal pain upper [Unknown]
